FAERS Safety Report 20055768 (Version 4)
Quarter: 2021Q4

REPORT INFORMATION
  Report Type: Spontaneous
  Country: US (occurrence: US)
  Receive Date: 20211111
  Receipt Date: 20211217
  Transmission Date: 20220303
  Serious: Yes (Hospitalization, Other)
  Sender: FDA-Public Use
  Company Number: US-BIOVITRUM-2021US9963

PATIENT
  Age: 1 Year
  Sex: Male

DRUGS (11)
  1. SYNAGIS [Suspect]
     Active Substance: PALIVIZUMAB
     Indication: Premature baby
     Route: 030
     Dates: start: 20211015
  2. ALBUTEROL [Concomitant]
     Active Substance: ALBUTEROL
     Route: 045
  3. FAMOTIDINE [Concomitant]
     Active Substance: FAMOTIDINE
  4. GLYCERIN [Concomitant]
     Active Substance: GLYCERIN
  5. NYSTATIN [Concomitant]
     Active Substance: NYSTATIN
     Dosage: 100000 UNITS/G POWDER
  6. POLY-VI-SOL/IRON [Concomitant]
  7. SYNAGIS [Suspect]
     Active Substance: PALIVIZUMAB
     Indication: Patent ductus arteriosus
  8. SYNAGIS [Suspect]
     Active Substance: PALIVIZUMAB
     Indication: Gastrostomy
  9. SYNAGIS [Suspect]
     Active Substance: PALIVIZUMAB
     Indication: Respiratory failure
  10. SODIUM CHLORIDE [Concomitant]
     Active Substance: SODIUM CHLORIDE
  11. SYNAGIS [Suspect]
     Active Substance: PALIVIZUMAB
     Indication: Atrial septal defect

REACTIONS (8)
  - Chronic respiratory failure [Unknown]
  - Respiratory syncytial virus bronchiolitis [Unknown]
  - Laryngeal stenosis [Unknown]
  - Dysphagia [Unknown]
  - Inguinal hernia [Unknown]
  - Hydrocele [Unknown]
  - Haematoma [Unknown]
  - Bronchiolitis [Unknown]

NARRATIVE: CASE EVENT DATE: 20211001
